FAERS Safety Report 17407733 (Version 1)
Quarter: 2020Q1

REPORT INFORMATION
  Report Type: Spontaneous
  Country: IN (occurrence: IN)
  Receive Date: 20200212
  Receipt Date: 20200212
  Transmission Date: 20200409
  Serious: Yes (Death, Other)
  Sender: FDA-Public Use
  Company Number: IN-SA-2020SA034500

PATIENT
  Age: 11 Year
  Sex: Female

DRUGS (6)
  1. CYCLOPHOSPHAMIDE. [Suspect]
     Active Substance: CYCLOPHOSPHAMIDE
     Indication: BONE MARROW CONDITIONING REGIMEN
  2. CYCLOPHOSPHAMIDE. [Suspect]
     Active Substance: CYCLOPHOSPHAMIDE
     Indication: ACUTE LYMPHOCYTIC LEUKAEMIA
  3. CAMPATH [Suspect]
     Active Substance: ALEMTUZUMAB
     Indication: ACUTE LYMPHOCYTIC LEUKAEMIA
  4. METHOTREXATE. [Suspect]
     Active Substance: METHOTREXATE
     Indication: PROPHYLAXIS AGAINST GRAFT VERSUS HOST DISEASE
  5. CAMPATH [Suspect]
     Active Substance: ALEMTUZUMAB
     Indication: BONE MARROW CONDITIONING REGIMEN
     Dosage: UNK
  6. TACROLIMUS. [Suspect]
     Active Substance: TACROLIMUS
     Indication: PROPHYLAXIS AGAINST GRAFT VERSUS HOST DISEASE

REACTIONS (9)
  - Viraemia [Unknown]
  - Pyrexia [Unknown]
  - Human polyomavirus infection [Unknown]
  - Adenovirus infection [Recovered/Resolved]
  - Chest pain [Unknown]
  - Off label use [Unknown]
  - Parainfluenzae virus infection [Unknown]
  - Cytomegalovirus viraemia [Unknown]
  - Sepsis [Fatal]
